FAERS Safety Report 16441421 (Version 1)
Quarter: 2019Q2

REPORT INFORMATION
  Report Type: Spontaneous
  Country: BE (occurrence: BE)
  Receive Date: 20190617
  Receipt Date: 20190617
  Transmission Date: 20190711
  Serious: Yes (Other)
  Sender: FDA-Public Use
  Company Number: BE-MYLANLABS-2019M1055412

PATIENT
  Age: 43 Year
  Sex: Male

DRUGS (1)
  1. PEGFILGRASTIM [Suspect]
     Active Substance: PEGFILGRASTIM
     Indication: PRODUCT USED FOR UNKNOWN INDICATION
     Dosage: 1 DOSAGE FORM, TOTAL (UNK UNK, ONCE/SINGLE)
     Route: 065

REACTIONS (8)
  - Nodule [Unknown]
  - Erythema [Unknown]
  - Arthralgia [Unknown]
  - Acute febrile neutrophilic dermatosis [Recovering/Resolving]
  - Pyrexia [Unknown]
  - Conjunctivitis [Unknown]
  - Skin lesion [Unknown]
  - Pancytopenia [Unknown]
